FAERS Safety Report 5916941-X (Version None)
Quarter: 2008Q4

REPORT INFORMATION
  Report Type: 
  Country: None (occurrence: None)
  Receive Date: 20081009
  Receipt Date: 20080924
  Transmission Date: 20090506
  Serious: Yes (Hospitalization)
  Sender: FDA-Public Use
  Company Number: 2008000776

PATIENT
  Age: 74 Year
  Sex: Female
  Weight: 67.9 kg

DRUGS (3)
  1. ERLOTINIB (ERLOTINIB) (TABLET) (ERLOTINIB) [Suspect]
     Indication: OVARIAN CANCER
     Dosage: (150 MG, QD), ORAL
     Route: 048
     Dates: start: 20080215
  2. BEVACIZUMAB (INJECTION FOR INFUSION) [Suspect]
     Indication: OVARIAN CANCER
     Dosage: (680 MG, Q2W), INTRAVENOUS
     Route: 042
     Dates: start: 20080221
  3. COUMADIN [Concomitant]

REACTIONS (7)
  - ANAEMIA [None]
  - BLOOD LACTATE DEHYDROGENASE INCREASED [None]
  - INTRA-ABDOMINAL HAEMORRHAGE [None]
  - NAUSEA [None]
  - PLATELET COUNT INCREASED [None]
  - PROTHROMBIN TIME PROLONGED [None]
  - VOMITING [None]
